FAERS Safety Report 4384929-9 (Version None)
Quarter: 2004Q2

REPORT INFORMATION
  Report Type: 
  Country: None (occurrence: None)
  Receive Date: 20040625
  Receipt Date: 20040602
  Transmission Date: 20050107
  Serious: Yes (Hospitalization)
  Sender: FDA-Public Use
  Company Number: JP-ROCHE-369555

PATIENT
  Age: 84 Year
  Sex: Male

DRUGS (3)
  1. RIVOTRIL [Suspect]
     Indication: CONVULSION
     Route: 048
     Dates: start: 20030815, end: 20040531
  2. GLIMICRON [Concomitant]
     Indication: DIABETES MELLITUS
     Route: 048
     Dates: start: 19980215, end: 20040531
  3. BASEN [Concomitant]
     Indication: DIABETES MELLITUS
     Route: 048
     Dates: start: 19980215, end: 20040531

REACTIONS (3)
  - BLISTER [None]
  - ERYTHEMA [None]
  - RASH [None]
